FAERS Safety Report 6337523-4 (Version None)
Quarter: 2009Q3

REPORT INFORMATION
  Report Type: 
  Country: None (occurrence: None)
  Receive Date: 20090901
  Receipt Date: 20090901
  Transmission Date: 20100115
  Serious: Yes (Disabling)
  Sender: FDA-Public Use
  Company Number: None

PATIENT
  Age: 28 Year
  Sex: Female
  Weight: 62.5964 kg

DRUGS (1)
  1. LOESTRIN 24 FE [Suspect]

REACTIONS (4)
  - ALOPECIA [None]
  - CHEST PAIN [None]
  - CONTACT LENS COMPLICATION [None]
  - LABORATORY TEST ABNORMAL [None]
